FAERS Safety Report 18536142 (Version 1)
Quarter: 2020Q4

REPORT INFORMATION
  Report Type: Other
  Country: FR (occurrence: FR)
  Receive Date: 20201124
  Receipt Date: 20201124
  Transmission Date: 20210114
  Serious: Yes (Hospitalization)
  Sender: FDA-Public Use
  Company Number: FR-ROCHE-2716328

PATIENT

DRUGS (7)
  1. TACROLIMUS. [Suspect]
     Active Substance: TACROLIMUS
     Indication: PROPHYLAXIS AGAINST TRANSPLANT REJECTION
     Dosage: 8-10 NG/L RANGE DURING THE FIRST 12 MONTHS POST TRANSPLANTATION, AND THEN 5-7 NG/L THEREAFTER
     Route: 065
  2. RITUXIMAB. [Suspect]
     Active Substance: RITUXIMAB
     Indication: TRANSPLANT REJECTION
     Dosage: 2 INJECTIONS, ONE WEEK APART
     Route: 065
  3. MYCOPHENOLATE MOFETIL. [Suspect]
     Active Substance: MYCOPHENOLATE MOFETIL
     Route: 065
  4. EVEROLIMUS. [Suspect]
     Active Substance: EVEROLIMUS
     Indication: PROPHYLAXIS AGAINST TRANSPLANT REJECTION
     Dosage: 3-5 NG/L RANGE
     Route: 065
  5. TOCILIZUMAB. [Suspect]
     Active Substance: TOCILIZUMAB
     Indication: TRANSPLANT REJECTION
     Dosage: MAXIMAL DOSE = 800 MG
     Route: 065
  6. PREDNISONE. [Suspect]
     Active Substance: PREDNISONE
     Indication: PROPHYLAXIS AGAINST TRANSPLANT REJECTION
     Route: 065
  7. MYCOPHENOLATE MOFETIL. [Suspect]
     Active Substance: MYCOPHENOLATE MOFETIL
     Indication: PROPHYLAXIS AGAINST TRANSPLANT REJECTION
     Dosage: FIRST 15 DAYS
     Route: 065

REACTIONS (13)
  - Bronchopulmonary aspergillosis [Unknown]
  - Pyelonephritis [Unknown]
  - Pulmonary nocardiosis [Unknown]
  - Microsporidia infection [Unknown]
  - Peritonitis [Unknown]
  - Subcutaneous abscess [Unknown]
  - Hepatitis E [Unknown]
  - Infection [Unknown]
  - Cutaneous nocardiosis [Unknown]
  - Cytomegalovirus infection [Unknown]
  - Polyomavirus viraemia [Unknown]
  - Pneumonia [Unknown]
  - Staphylococcal bacteraemia [Unknown]
